FAERS Safety Report 16018142 (Version 1)
Quarter: 2019Q1

REPORT INFORMATION
  Report Type: Spontaneous
  Country: AT (occurrence: AT)
  Receive Date: 20190228
  Receipt Date: 20190228
  Transmission Date: 20190418
  Serious: Yes (Other)
  Sender: FDA-Public Use
  Company Number: AT-PFIZER INC-2019082216

PATIENT
  Age: 77 Year
  Sex: Female
  Weight: 70 kg

DRUGS (18)
  1. PRAMULEX [Concomitant]
  2. CRESTOR [Concomitant]
     Active Substance: ROSUVASTATIN CALCIUM
  3. FURO-SPIROBENE [Concomitant]
     Active Substance: FUROSEMIDE\SPIRONOLACTONE
     Dosage: 1 DF, WEEKLY
  4. CONCOR [Concomitant]
     Active Substance: BISOPROLOL FUMARATE
  5. ZOLDEM [Concomitant]
     Active Substance: ZOLPIDEM TARTRATE
     Dosage: 0.5 DF, UNK
  6. SIRDALUD [Concomitant]
     Active Substance: TIZANIDINE
  7. LIXIANA [Concomitant]
     Active Substance: EDOXABAN TOSYLATE
     Dates: start: 201706
  8. NORGESIC [ORPHENADRINE CITRATE;PARACETAMOL] [Concomitant]
  9. CRESTOR [Concomitant]
     Active Substance: ROSUVASTATIN CALCIUM
  10. ALPRAZOLAM. [Concomitant]
     Active Substance: ALPRAZOLAM
  11. NORVASC [Concomitant]
     Active Substance: AMLODIPINE BESYLATE
     Dosage: 0.25 DF, 1X/DAY
  12. TRITTICO [Concomitant]
     Active Substance: TRAZODONE HYDROCHLORIDE
     Dosage: 0.67 DF, 1X/DAY
  13. RAMIPRIL. [Concomitant]
     Active Substance: RAMIPRIL
     Dosage: 0.25 DF, AS NEEDED
  14. LYRICA [Suspect]
     Active Substance: PREGABALIN
     Dosage: UNK
  15. RAMIPRIL. [Concomitant]
     Active Substance: RAMIPRIL
     Dosage: UNK
  16. REMIFEMIN [Concomitant]
     Active Substance: BLACK COHOSH
  17. PANTOPRAZOL [PANTOPRAZOLE SODIUM SESQUIHYDRATE] [Concomitant]
  18. EZETROL [Concomitant]
     Active Substance: EZETIMIBE
     Dosage: UNK

REACTIONS (24)
  - Mental disorder [Unknown]
  - Disturbance in attention [Unknown]
  - Dizziness [Unknown]
  - Disorientation [Unknown]
  - Tunnel vision [Unknown]
  - Feeling drunk [Unknown]
  - Weight increased [Unknown]
  - Nervousness [Unknown]
  - Malaise [Unknown]
  - Sleep disorder [Unknown]
  - Thinking abnormal [Unknown]
  - Muscle spasms [Unknown]
  - Clumsiness [Unknown]
  - Photopsia [Unknown]
  - Amnesia [Unknown]
  - Gait disturbance [Unknown]
  - Oropharyngeal pain [Unknown]
  - Aphasia [Unknown]
  - Confusional state [Unknown]
  - Irritability [Unknown]
  - Balance disorder [Unknown]
  - Fatigue [Unknown]
  - Arthralgia [Unknown]
  - Dry skin [Unknown]
